FAERS Safety Report 6841847-1 (Version None)
Quarter: 2010Q3

REPORT INFORMATION
  Report Type: 
  Country: None (occurrence: None)
  Receive Date: 20100714
  Receipt Date: 20070717
  Transmission Date: 20110219
  Serious: Yes (Hospitalization, Other)
  Sender: FDA-Public Use
  Company Number: US-PFIZER INC-2007060257

PATIENT
  Sex: Female
  Weight: 54.545 kg

DRUGS (10)
  1. CHANTIX [Suspect]
     Indication: SMOKING CESSATION THERAPY
     Dates: start: 20070515
  2. ISONIAZID [Concomitant]
  3. PROTONIX [Concomitant]
  4. DIGOXIN [Concomitant]
  5. SIMVASTATIN [Concomitant]
  6. ALEVE (CAPLET) [Concomitant]
  7. ACETYLSALICYLIC ACID [Concomitant]
  8. SPIRIVA [Concomitant]
  9. DUONEB [Concomitant]
  10. ALL OTHER NON-THERAPEUTIC PRODUCTS [Concomitant]

REACTIONS (3)
  - HEADACHE [None]
  - INSOMNIA [None]
  - MYOCARDIAL INFARCTION [None]
